FAERS Safety Report 15104454 (Version 2)
Quarter: 2018Q3

REPORT INFORMATION
  Report Type: Report from Study
  Country: US (occurrence: US)
  Receive Date: 20180703
  Receipt Date: 20180719
  Transmission Date: 20181010
  Serious: Yes (Death)
  Sender: FDA-Public Use
  Company Number: US-PFIZER INC-2018186619

PATIENT
  Age: 46 Year
  Sex: Male
  Weight: 74.38 kg

DRUGS (27)
  1. BLINDED DICLOFENAC [Suspect]
     Active Substance: DICLOFENAC
     Indication: OSTEOARTHRITIS
     Dosage: BLINDED THERAPY, CYCLIC (EVERY 8 WEEKS)
     Route: 058
     Dates: start: 20160418, end: 20160617
  2. BLINDED NAPROXEN [Suspect]
     Active Substance: NAPROXEN
     Indication: OSTEOARTHRITIS
     Dosage: BLINDED THERAPY, CYCLIC (EVERY 8 WEEKS)
     Route: 058
     Dates: start: 20160418, end: 20160617
  3. BLINDED PLACEBO [Suspect]
     Active Substance: INVESTIGATIONAL PRODUCT
     Indication: OSTEOARTHRITIS
     Dosage: BLINDED THERAPY, CYCLIC (EVERY 8 WEEKS)
     Route: 058
     Dates: start: 20160418, end: 20160617
  4. BLINDED DICLOFENAC [Suspect]
     Active Substance: DICLOFENAC
     Dosage: BLINDED THERAPY, 2X/DAY
     Route: 048
     Dates: start: 20160418, end: 20160818
  5. BLINDED CELECOXIB [Suspect]
     Active Substance: CELECOXIB
     Indication: OSTEOARTHRITIS
     Dosage: BLINDED THERAPY, CYCLIC (EVERY 8 WEEKS)
     Route: 058
     Dates: start: 20160418, end: 20160617
  6. BLINDED PF?04383119 [Suspect]
     Active Substance: TANEZUMAB
     Indication: OSTEOARTHRITIS
     Dosage: BLINDED THERAPY, CYCLIC (EVERY 8 WEEKS)
     Route: 058
     Dates: start: 20160418, end: 20160617
  7. BLINDED PLACEBO [Suspect]
     Active Substance: INVESTIGATIONAL PRODUCT
     Indication: OSTEOARTHRITIS
     Dosage: BLINDED THERAPY, CYCLIC (EVERY 8 WEEKS)
     Route: 058
     Dates: start: 20160418, end: 20160617
  8. BLINDED NAPROXEN [Suspect]
     Active Substance: NAPROXEN
     Dosage: BLINDED THERAPY, 2X/DAY
     Route: 048
     Dates: start: 20160418, end: 20160818
  9. BLINDED NAPROXEN [Suspect]
     Active Substance: NAPROXEN
     Dosage: BLINDED THERAPY, 2X/DAY
     Route: 048
     Dates: start: 20160418, end: 20160818
  10. BLINDED NAPROXEN [Suspect]
     Active Substance: NAPROXEN
     Indication: OSTEOARTHRITIS
     Dosage: BLINDED THERAPY, CYCLIC (EVERY 8 WEEKS)
     Route: 058
     Dates: start: 20160418, end: 20160617
  11. BLINDED PF?04383119 [Suspect]
     Active Substance: TANEZUMAB
     Indication: OSTEOARTHRITIS
     Dosage: BLINDED THERAPY, CYCLIC (EVERY 8 WEEKS)
     Route: 058
     Dates: start: 20160418, end: 20160617
  12. BLINDED PF?04383119 [Suspect]
     Active Substance: TANEZUMAB
     Dosage: BLINDED THERAPY, 2X/DAY
     Route: 048
     Dates: start: 20160418, end: 20160818
  13. BLINDED CELECOXIB [Suspect]
     Active Substance: CELECOXIB
     Indication: OSTEOARTHRITIS
     Dosage: BLINDED THERAPY, CYCLIC (EVERY 8 WEEKS)
     Route: 058
     Dates: start: 20160418, end: 20160617
  14. BLINDED PLACEBO [Suspect]
     Active Substance: INVESTIGATIONAL PRODUCT
     Indication: OSTEOARTHRITIS
     Dosage: BLINDED THERAPY, CYCLIC (EVERY 8 WEEKS)
     Route: 058
     Dates: start: 20160418, end: 20160617
  15. BLINDED PLACEBO [Suspect]
     Active Substance: INVESTIGATIONAL PRODUCT
     Indication: OSTEOARTHRITIS
     Dosage: BLINDED THERAPY, CYCLIC (EVERY 8 WEEKS)
     Route: 058
     Dates: start: 20160418, end: 20160617
  16. BLINDED CELECOXIB [Suspect]
     Active Substance: CELECOXIB
     Dosage: BLINDED THERAPY, 2X/DAY
     Route: 048
     Dates: start: 20160418, end: 20160818
  17. BLINDED DICLOFENAC [Suspect]
     Active Substance: DICLOFENAC
     Dosage: BLINDED THERAPY, 2X/DAY
     Route: 048
     Dates: start: 20160418, end: 20160818
  18. BLINDED PLACEBO [Suspect]
     Active Substance: INVESTIGATIONAL PRODUCT
     Dosage: BLINDED THERAPY, 2X/DAY
     Route: 048
     Dates: start: 20160418, end: 20160818
  19. BLINDED CELECOXIB [Suspect]
     Active Substance: CELECOXIB
     Dosage: BLINDED THERAPY, 2X/DAY
     Route: 048
     Dates: start: 20160418, end: 20160818
  20. BLINDED PLACEBO [Suspect]
     Active Substance: INVESTIGATIONAL PRODUCT
     Dosage: BLINDED THERAPY, 2X/DAY
     Route: 048
     Dates: start: 20160418, end: 20160818
  21. BLINDED PLACEBO [Suspect]
     Active Substance: INVESTIGATIONAL PRODUCT
     Dosage: BLINDED THERAPY, 2X/DAY
     Route: 048
     Dates: start: 20160418, end: 20160818
  22. BLINDED PLACEBO [Suspect]
     Active Substance: INVESTIGATIONAL PRODUCT
     Dosage: BLINDED THERAPY, 2X/DAY
     Route: 048
     Dates: start: 20160418, end: 20160818
  23. NAPROXEN. [Concomitant]
     Active Substance: NAPROXEN
     Indication: OSTEOARTHRITIS
     Dosage: 500 MG, 2X/DAY
     Route: 048
     Dates: start: 2005, end: 20160401
  24. MORPHINE SULFATE. [Suspect]
     Active Substance: MORPHINE SULFATE
     Dosage: UNK
  25. CODEINE [Suspect]
     Active Substance: CODEINE
     Dosage: UNK
  26. BLINDED DICLOFENAC [Suspect]
     Active Substance: DICLOFENAC
     Indication: OSTEOARTHRITIS
     Dosage: BLINDED THERAPY, CYCLIC (EVERY 8 WEEKS)
     Route: 058
     Dates: start: 20160418, end: 20160617
  27. BLINDED PF?04383119 [Suspect]
     Active Substance: TANEZUMAB
     Dosage: BLINDED THERAPY, 2X/DAY
     Route: 048
     Dates: start: 20160418, end: 20160818

REACTIONS (1)
  - Toxicity to various agents [Fatal]

NARRATIVE: CASE EVENT DATE: 20160908
